FAERS Safety Report 25557782 (Version 1)
Quarter: 2025Q3

REPORT INFORMATION
  Report Type: Spontaneous
  Country: CH (occurrence: CH)
  Receive Date: 20250715
  Receipt Date: 20250715
  Transmission Date: 20251021
  Serious: Yes (Hospitalization, Other)
  Sender: MYLAN
  Company Number: None

PATIENT
  Age: 69 Year
  Sex: Female
  Weight: 54.1 kg

DRUGS (24)
  1. XANAX [Suspect]
     Active Substance: ALPRAZOLAM
     Indication: Depression
     Dosage: 5 MILLIGRAM, QD (0-2 MG-0-4 MG/1 AT NOON, 2 AT BEDTIME)
  2. VALIUM [Suspect]
     Active Substance: DIAZEPAM
     Indication: Depression
     Dosage: 10 MILLIGRAM, BID (1 AT NOON AND 1 AT BEDTIME)
  3. ANAFRANIL [Suspect]
     Active Substance: CLOMIPRAMINE HYDROCHLORIDE
     Indication: Product used for unknown indication
     Dosage: 225 MILLIGRAM, QD (75 MG -0 -0-150 MG/1 IN THE MORNING, 2 AT BEDTIME)
  4. PREGABALIN [Suspect]
     Active Substance: PREGABALIN
     Indication: Product used for unknown indication
     Dosage: 200 MILLIGRAM, PM (1 AT BEDTIME)
  5. QUETIAPINE FUMARATE [Suspect]
     Active Substance: QUETIAPINE FUMARATE
     Indication: Depression
     Dosage: 400 MILLIGRAM, PM (0.5 AT BEDTIME)
  6. QUETIAPINE FUMARATE [Suspect]
     Active Substance: QUETIAPINE FUMARATE
     Indication: Depression
     Dosage: 50 MILLIGRAM, NOON (2 AT NOON)
  7. PREGABALIN [Suspect]
     Active Substance: PREGABALIN
     Indication: Product used for unknown indication
     Dosage: 100 MILLIGRAM, AM (1 IN  THE MORNING)
  8. QUETIAPINE FUMARATE [Suspect]
     Active Substance: QUETIAPINE FUMARATE
     Indication: Depression
     Dosage: 50 MILLIGRAM, QD
  9. MOVIPREP [Concomitant]
     Active Substance: ASCORBIC ACID\POLYETHYLENE GLYCOL 3350\POTASSIUM CHLORIDE\SODIUM ASCORBATE\SODIUM CHLORIDE\SODIUM SU
  10. DEMANNOSE [Concomitant]
     Active Substance: DEMANNOSE
     Dosage: 4 GRAM, QD (DAILY)
  11. CALCIUM CARBONATE\CHOLECALCIFEROL [Concomitant]
     Active Substance: CALCIUM CARBONATE\CHOLECALCIFEROL
     Dosage: 1 DOSAGE FORM, QD
  12. Zeller Feigensirup mit Senna [Concomitant]
  13. CALCITRIOL [Concomitant]
     Active Substance: CALCITRIOL
     Dosage: 0.25 MICROGRAM, QD
  14. Paracetamol sfp [Concomitant]
     Dosage: 500 MILLIGRAM, Q6H
  15. MINERALS\VITAMINS [Concomitant]
     Active Substance: MINERALS\VITAMINS
     Dosage: 1 DOSAGE FORM, QD
     Dates: end: 20250615
  16. SODIUM PICOSULFATE [Concomitant]
     Active Substance: SODIUM PICOSULFATE
  17. Arktis calcium [Concomitant]
     Dosage: 3 DOSAGE FORM, BID
     Dates: end: 202506
  18. ESOMEPRAZOLE [Concomitant]
     Active Substance: ESOMEPRAZOLE
     Dosage: 40 MILLIGRAM, QD
  19. MELATONIN [Concomitant]
     Active Substance: MELATONIN
     Dosage: 2 MILLIGRAM, QD
  20. METAMIZOLE [Concomitant]
     Active Substance: METAMIZOLE
     Dosage: 500 MILLIGRAM, BID
  21. METAMIZOLE [Concomitant]
     Active Substance: METAMIZOLE
  22. PEPPERMINT OIL [Concomitant]
     Active Substance: PEPPERMINT OIL
     Dosage: 187 MILLIGRAM, QD
     Dates: end: 202506
  23. ACTIVATED CHARCOAL\DIMETHICONE [Concomitant]
     Active Substance: ACTIVATED CHARCOAL\DIMETHICONE
     Dosage: 84 MILLIGRAM, Q8H
  24. ESCHERICHIA COLI [Concomitant]
     Active Substance: ESCHERICHIA COLI

REACTIONS (2)
  - Forearm fracture [Recovering/Resolving]
  - Fall [Recovering/Resolving]

NARRATIVE: CASE EVENT DATE: 20250616
